FAERS Safety Report 5672379-4 (Version None)
Quarter: 2008Q1

REPORT INFORMATION
  Report Type: 
  Country: None (occurrence: None)
  Receive Date: 20080318
  Receipt Date: 20080318
  Transmission Date: 20080703
  Serious: Yes (Hospitalization)
  Sender: FDA-Public Use
  Company Number: None

PATIENT
  Sex: Female

DRUGS (12)
  1. REVLIMID [Suspect]
     Indication: MULTIPLE MYELOMA
     Dosage: 15MG DAILY 21D/28D PO
     Route: 048
  2. DEXAMETHASONE TAB [Suspect]
     Indication: MULTIPLE MYELOMA
     Dosage: 20MG WEEKLY PO
     Route: 048
  3. REVLIMID [Concomitant]
  4. DEXAMETHASONE [Concomitant]
  5. OMEPRAZOLE [Concomitant]
  6. NEURONTIN [Concomitant]
  7. REGLAN [Concomitant]
  8. ATIVAN [Concomitant]
  9. LORTAB [Concomitant]
  10. COLACE [Concomitant]
  11. RESTORIL [Concomitant]
  12. TYLENOL (CAPLET) [Concomitant]

REACTIONS (2)
  - ESCHERICHIA SEPSIS [None]
  - URINARY TRACT INFECTION ENTEROCOCCAL [None]
